FAERS Safety Report 8531517-6 (Version None)
Quarter: 2012Q3

REPORT INFORMATION
  Report Type: 
  Country: None (occurrence: None)
  Receive Date: 20120723
  Receipt Date: 20120716
  Transmission Date: 20120928
  Serious: Yes (Death, Other)
  Sender: FDA-Public Use
  Company Number: FR-PFIZER INC-2012165200

PATIENT
  Age: 69 Year
  Sex: Female

DRUGS (6)
  1. ALPRAZOLAM [Suspect]
     Dosage: 0.50 MG, 60 TABS
  2. TERCIAN [Suspect]
     Dosage: 25 MG, 60 TABS
  3. LITHIUM CARBONATE [Suspect]
     Dosage: 400 MG, 60 TABS
  4. GLUCOVANCE [Suspect]
     Dosage: 60 TABLETS
  5. METFORMIN HCL [Suspect]
     Dosage: 30 G, UNK
  6. EFFEXOR [Suspect]
     Dosage: 75 MG, 30 TABLETS

REACTIONS (10)
  - HYPOXIA [None]
  - SHOCK [None]
  - COMA [None]
  - HYPOTENSION [None]
  - LACTIC ACIDOSIS [None]
  - DISSEMINATED INTRAVASCULAR COAGULATION [None]
  - TOXICITY TO VARIOUS AGENTS [None]
  - BRADYCARDIA [None]
  - MULTI-ORGAN FAILURE [None]
  - RENAL FAILURE ACUTE [None]
